FAERS Safety Report 8399144 (Version 6)
Quarter: 2012Q4

REPORT INFORMATION
  Report Type: 
  Country: US (occurrence: US)
  Receive Date: 20120210
  Receipt Date: 20121219
  Transmission Date: 20130627
  Serious: Yes (Other)
  Sender: FDA-Public Use
  Company Number: US-BAYER-2012-011656

PATIENT
  Age: 23 Year
  Sex: Female
  Weight: 93.88 kg

DRUGS (1)
  1. MIRENA [Suspect]
     Indication: CONTRACEPTION
     Dosage: 20 mcg/24hr, CONT
     Route: 015
     Dates: start: 20111216, end: 20120730

REACTIONS (6)
  - Genital haemorrhage [Recovering/Resolving]
  - Dysfunctional uterine bleeding [Recovering/Resolving]
  - Uterine spasm [None]
  - Vaginal discharge [None]
  - Pain [None]
  - Adverse event [Not Recovered/Not Resolved]
